FAERS Safety Report 19482000 (Version 1)
Quarter: 2021Q3

REPORT INFORMATION
  Report Type: Spontaneous
  Country: US (occurrence: US)
  Receive Date: 20210701
  Receipt Date: 20210701
  Transmission Date: 20211014
  Serious: No
  Sender: FDA-Public Use
  Company Number: US-ALKEM LABORATORIES LIMITED-US-ALKEM-2020-05398

PATIENT
  Sex: Female

DRUGS (11)
  1. SERTRALINE [Suspect]
     Active Substance: SERTRALINE HYDROCHLORIDE
     Indication: PANIC DISORDER
  2. LOSARTAN. [Concomitant]
     Active Substance: LOSARTAN
     Indication: HYPERTENSION
     Dosage: 50 MILLIGRAM, BID
     Route: 065
  3. VITAMIN D [Concomitant]
     Active Substance: VITAMIN D NOS
     Indication: PRODUCT USED FOR UNKNOWN INDICATION
     Dosage: UNK
     Route: 065
  4. TRAMADOL. [Concomitant]
     Active Substance: TRAMADOL
     Indication: ARTHRITIS
     Dosage: 50 MILLIGRAM, BID
     Route: 065
  5. HYDROCHLOROTHIAZIDE. [Concomitant]
     Active Substance: HYDROCHLOROTHIAZIDE
     Indication: HYPERTENSION
     Dosage: 25 MILLIGRAM, QD
     Route: 065
  6. TRAMADOL. [Concomitant]
     Active Substance: TRAMADOL
     Indication: FIBROMYALGIA
  7. AMLODIPINE BESYLATE. [Suspect]
     Active Substance: AMLODIPINE BESYLATE
     Indication: HYPERTENSION
     Dosage: UNK
     Route: 065
  8. SERTRALINE [Suspect]
     Active Substance: SERTRALINE HYDROCHLORIDE
     Indication: ANXIETY
     Dosage: 1 DOSAGE FORM, OD
     Route: 048
  9. DILTIAZEM. [Suspect]
     Active Substance: DILTIAZEM
     Indication: HYPERTENSION
     Dosage: 1 DOSAGE FORM, OD
     Route: 048
     Dates: start: 201908
  10. CLONAZEPAM. [Concomitant]
     Active Substance: CLONAZEPAM
     Indication: ANXIETY
     Dosage: 0.5 MILLIGRAM, BID
     Route: 065
  11. CLONAZEPAM. [Concomitant]
     Active Substance: CLONAZEPAM
     Indication: VITAMIN D

REACTIONS (3)
  - Nocturia [Recovered/Resolved]
  - Alopecia [Recovered/Resolved]
  - Feeling hot [Not Recovered/Not Resolved]
